FAERS Safety Report 5911201-5 (Version None)
Quarter: 2008Q4

REPORT INFORMATION
  Report Type: 
  Country: None (occurrence: None)
  Receive Date: 20081007
  Receipt Date: 20080717
  Transmission Date: 20090506
  Serious: No
  Sender: FDA-Public Use
  Company Number: US-BRISTOL-MYERS SQUIBB COMPANY-14266233

PATIENT
  Age: 57 Year
  Sex: Female

DRUGS (9)
  1. AVAPRO [Suspect]
     Indication: HYPERTENSION
     Dosage: STARTED IN JAN08 OR FEB08
     Dates: start: 20080101
  2. AVAPRO [Suspect]
     Indication: HYPERTENSION
     Dates: start: 20080101
  3. NOVOLOG [Concomitant]
  4. LANTUS [Concomitant]
  5. LIPITOR [Concomitant]
  6. DYAZIDE [Concomitant]
  7. VERAPAMIL [Concomitant]
  8. TRAVATAN [Concomitant]
     Dosage: EYE DROP
  9. MULTI-VITAMINS [Concomitant]

REACTIONS (1)
  - DYSGEUSIA [None]
